FAERS Safety Report 7328677-1 (Version None)
Quarter: 2011Q1

REPORT INFORMATION
  Report Type: 
  Country: None (occurrence: None)
  Receive Date: 20110225
  Receipt Date: 20110225
  Transmission Date: 20110831
  Serious: Yes (Hospitalization)
  Sender: FDA-Public Use
  Company Number: None

PATIENT
  Age: 67 Year
  Sex: Female
  Weight: 67.586 kg

DRUGS (1)
  1. RIVASTIGMINE [Suspect]
     Indication: MEMORY IMPAIRMENT
     Dosage: 1 TABLET 6MG CAP 1 TABLE 2- X DAY PO ONE TIME ONLY
     Route: 048
     Dates: start: 20110104, end: 20110104

REACTIONS (15)
  - MUSCLE TWITCHING [None]
  - DRUG LEVEL FLUCTUATING [None]
  - GAIT DISTURBANCE [None]
  - VOMITING [None]
  - SPEECH DISORDER [None]
  - HEART RATE IRREGULAR [None]
  - CONFUSIONAL STATE [None]
  - NAUSEA [None]
  - DYSPNOEA [None]
  - MUSCLE SPASMS [None]
  - ASTHENIA [None]
  - DYSPHAGIA [None]
  - INCORRECT DOSE ADMINISTERED [None]
  - COORDINATION ABNORMAL [None]
  - POLLAKIURIA [None]
